FAERS Safety Report 5303998-2 (Version None)
Quarter: 2007Q1

REPORT INFORMATION
  Report Type: 
  Country: None (occurrence: None)
  Receive Date: 20070201
  Receipt Date: 20061115
  Transmission Date: 20070707
  Serious: No
  Sender: FDA-Public Use
  Company Number: 2006PV025369

PATIENT
  Age: 63 Year
  Sex: Female
  Weight: 126.1 kg

DRUGS (2)
  1. BYETTA [Suspect]
     Indication: DIABETES MELLITUS NON-INSULIN-DEPENDENT
     Dosage: SEE IMAGE
     Route: 058
     Dates: start: 20051101, end: 20051130
  2. BYETTA [Suspect]
     Indication: DIABETES MELLITUS NON-INSULIN-DEPENDENT
     Dosage: SEE IMAGE
     Route: 058
     Dates: start: 20051201

REACTIONS (5)
  - FUNGAL INFECTION [None]
  - FUNGAL SKIN INFECTION [None]
  - RASH PRURITIC [None]
  - VAGINAL INFECTION [None]
  - WEIGHT DECREASED [None]
